FAERS Safety Report 19325318 (Version 1)
Quarter: 2021Q2

REPORT INFORMATION
  Report Type: Spontaneous
  Country: JP (occurrence: JP)
  Receive Date: 20210528
  Receipt Date: 20210528
  Transmission Date: 20210717
  Serious: Yes (Other)
  Sender: FDA-Public Use
  Company Number: JP-TEVA-2021-JP-1917331

PATIENT
  Age: 6 Decade
  Sex: Male

DRUGS (4)
  1. ROSUVASTATIN. [Suspect]
     Active Substance: ROSUVASTATIN
     Dosage: 10 MILLIGRAM DAILY;
     Route: 065
  2. EZETIMIBE. [Suspect]
     Active Substance: EZETIMIBE
     Indication: HYPERCHOLESTEROLAEMIA
     Dosage: 5 MILLIGRAM DAILY;
     Route: 065
  3. ROSUVASTATIN. [Suspect]
     Active Substance: ROSUVASTATIN
     Indication: HYPERCHOLESTEROLAEMIA
     Dosage: 5 MILLIGRAM DAILY;
     Route: 065
  4. LEVOTHYROXINE. [Concomitant]
     Active Substance: LEVOTHYROXINE
     Indication: HYPOTHYROIDISM
     Dosage: 87.5 MICROGRAM DAILY;
     Route: 065

REACTIONS (2)
  - Drug-induced liver injury [Unknown]
  - Myopathy [Unknown]
